FAERS Safety Report 17942000 (Version 1)
Quarter: 2020Q2

REPORT INFORMATION
  Report Type: Not Available
  Country: US (occurrence: US)
  Receive Date: 20200624
  Receipt Date: 20200624
  Transmission Date: 20200714
  Serious: No
  Sender: FDA-Public Use
  Company Number: US-NEUROCRINE BIOSCIENCES INC.-2020NBI02037

PATIENT
  Age: 67 Year
  Sex: Female

DRUGS (5)
  1. INGREZZA [Suspect]
     Active Substance: VALBENAZINE
     Indication: TARDIVE DYSKINESIA
     Route: 048
  2. CLONOPIN [Concomitant]
     Active Substance: CLONAZEPAM
  3. BACLOFEN. [Concomitant]
     Active Substance: BACLOFEN
  4. MELOXICAM. [Concomitant]
     Active Substance: MELOXICAM
  5. LEXAPRO [Concomitant]
     Active Substance: ESCITALOPRAM OXALATE

REACTIONS (1)
  - Dyskinesia [Unknown]
